FAERS Safety Report 13460329 (Version 1)
Quarter: 2017Q2

REPORT INFORMATION
  Report Type: Spontaneous
  Country: CH (occurrence: CH)
  Receive Date: 20170420
  Receipt Date: 20170420
  Transmission Date: 20170830
  Serious: Yes (Hospitalization)
  Sender: FDA-Public Use
  Company Number: CH-JNJFOC-20170418577

PATIENT
  Age: 90 Year
  Sex: Female
  Weight: 64 kg

DRUGS (4)
  1. XARELTO [Suspect]
     Active Substance: RIVAROXABAN
     Indication: ATRIAL FIBRILLATION
     Route: 048
  2. TOREM [Concomitant]
     Active Substance: TORSEMIDE
     Route: 048
  3. COSAAR [Concomitant]
     Active Substance: LOSARTAN POTASSIUM
     Indication: HYPERTENSION
     Route: 048
  4. CALCIMAGON-D3 [Concomitant]
     Active Substance: CALCIUM\CHOLECALCIFEROL
     Route: 065

REACTIONS (6)
  - Subdural haematoma [Recovering/Resolving]
  - Extradural haematoma [Recovering/Resolving]
  - Dysarthria [Unknown]
  - Subarachnoid haemorrhage [Recovering/Resolving]
  - Personality change [Unknown]
  - Facial paresis [Unknown]

NARRATIVE: CASE EVENT DATE: 20160930
